FAERS Safety Report 7619285-3 (Version None)
Quarter: 2011Q3

REPORT INFORMATION
  Report Type: 
  Country: None (occurrence: None)
  Receive Date: 20110718
  Receipt Date: 20110707
  Transmission Date: 20111222
  Serious: Yes (Other)
  Sender: FDA-Public Use
  Company Number: NL-AMGEN-NLDSP2011034653

PATIENT
  Age: 71 Year
  Sex: Male

DRUGS (2)
  1. ARANESP [Suspect]
     Indication: PRODUCT USED FOR UNKNOWN INDICATION
     Dosage: 40 A?G, Q2WK
     Route: 058
     Dates: start: 20110518
  2. ANTIBIOTICS [Concomitant]

REACTIONS (3)
  - GENERALISED ERYTHEMA [None]
  - PRURITUS GENERALISED [None]
  - BLISTER [None]
